FAERS Safety Report 5625523-9 (Version None)
Quarter: 2008Q1

REPORT INFORMATION
  Report Type: 
  Country: None (occurrence: None)
  Receive Date: 20080211
  Receipt Date: 20080211
  Transmission Date: 20080703
  Serious: Yes (Death)
  Sender: FDA-Public Use
  Company Number: None

PATIENT
  Age: 49 Year
  Sex: Female
  Weight: 234 kg

DRUGS (10)
  1. METHOTREXATE [Suspect]
     Indication: PSORIASIS
     Dosage: 2.5MG  SIX TIMES A DAY PO
     Route: 048
     Dates: start: 20071006, end: 20071119
  2. CYCLOSPORINE [Suspect]
     Indication: PSORIASIS
     Dosage: 200MG DAILY PO
     Route: 048
     Dates: start: 20071006, end: 20071119
  3. CEFEPIME [Concomitant]
  4. METHADONE HCL [Concomitant]
  5. INSULIN [Concomitant]
  6. PRILOSEC [Concomitant]
  7. EFFEXOR XR [Concomitant]
  8. WELLBUTRIN [Concomitant]
  9. FERROUS SULFATE TAB [Concomitant]
  10. OS CAL [Concomitant]

REACTIONS (6)
  - BLOOD POTASSIUM INCREASED [None]
  - DIALYSIS [None]
  - PANCYTOPENIA [None]
  - RENAL FAILURE ACUTE [None]
  - SIMILAR REACTION ON PREVIOUS EXPOSURE TO DRUG [None]
  - THERAPEUTIC AGENT TOXICITY [None]
